FAERS Safety Report 5912807-X (Version None)
Quarter: 2008Q4

REPORT INFORMATION
  Report Type: 
  Country: None (occurrence: None)
  Receive Date: 20081008
  Receipt Date: 20010110
  Transmission Date: 20090506
  Serious: No
  Sender: FDA-Public Use
  Company Number: US-ABBOTT-08P-163-0458236-00

PATIENT
  Sex: Female

DRUGS (3)
  1. DEPAKOTE [Suspect]
     Indication: BIPOLAR I DISORDER
  2. DEPAKOTE [Suspect]
     Dosage: DEPAKOTE
  3. DEPAKOTE [Suspect]
     Dosage: DEPAKOTE ER

REACTIONS (1)
  - DISCOMFORT [None]
